FAERS Safety Report 26179948 (Version 1)
Quarter: 2025Q4

REPORT INFORMATION
  Report Type: Spontaneous
  Country: US (occurrence: US)
  Receive Date: 20251219
  Receipt Date: 20251219
  Transmission Date: 20260117
  Serious: No
  Sender: DR REDDYS
  Company Number: US-DRL-USA-USA/2025/11/018294

PATIENT
  Sex: Female

DRUGS (1)
  1. FLUOROURACIL [Suspect]
     Active Substance: FLUOROURACIL
     Indication: Nasal disorder
     Dosage: USING FLUOROURACIL CREAM 5% TWICE DAILY FOR NEARLY THREE WEEKS

REACTIONS (3)
  - Erythema [Unknown]
  - Scab [Unknown]
  - Therapy cessation [Unknown]
